FAERS Safety Report 7804942-6 (Version None)
Quarter: 2011Q4

REPORT INFORMATION
  Report Type: 
  Country: None (occurrence: None)
  Receive Date: 20111010
  Receipt Date: 20110929
  Transmission Date: 20120403
  Serious: Yes (Hospitalization)
  Sender: FDA-Public Use
  Company Number: US-JNJFOC-20111000938

PATIENT
  Sex: Male
  Weight: 56.9 kg

DRUGS (4)
  1. MIRALAX [Concomitant]
  2. REMICADE [Suspect]
     Indication: INFLAMMATORY BOWEL DISEASE
     Route: 042
     Dates: start: 20080805
  3. REMICADE [Suspect]
     Route: 042
     Dates: start: 20110812
  4. ANTIBIOTICS [Concomitant]
     Indication: INFLAMMATORY BOWEL DISEASE

REACTIONS (2)
  - ANAL ABSCESS [None]
  - STREPTOCOCCAL INFECTION [None]
